FAERS Safety Report 6814662-2 (Version None)
Quarter: 2010Q3

REPORT INFORMATION
  Report Type: 
  Country: None (occurrence: None)
  Receive Date: 20100702
  Receipt Date: 20100618
  Transmission Date: 20110219
  Serious: Yes (Hospitalization)
  Sender: FDA-Public Use
  Company Number: US-PERRIGO-10US010358

PATIENT
  Sex: Male

DRUGS (3)
  1. LOPERAMIDE HYDROCHLORIDE 2 MG 224 [Suspect]
     Indication: PRODUCT USED FOR UNKNOWN INDICATION
     Dosage: UNK
     Route: 048
     Dates: start: 20100401, end: 20100401
  2. AMLODIPINE [Suspect]
     Indication: WRONG DRUG ADMINISTERED
     Dosage: UNK
     Route: 048
     Dates: start: 20100401, end: 20100401
  3. LISINOPRIL [Suspect]
     Indication: WRONG DRUG ADMINISTERED
     Dosage: UNK
     Route: 048
     Dates: start: 20100401, end: 20100401

REACTIONS (3)
  - HYPOTENSION [None]
  - ROAD TRAFFIC ACCIDENT [None]
  - WRONG DRUG ADMINISTERED [None]
